FAERS Safety Report 14706591 (Version 1)
Quarter: 2018Q2

REPORT INFORMATION
  Report Type: Spontaneous
  Country: US (occurrence: US)
  Receive Date: 20180402
  Receipt Date: 20180402
  Transmission Date: 20180711
  Serious: No
  Sender: FDA-Public Use
  Company Number: US-APTEVO BIOTHERAPEUTICS LLC-17HB00037SP

PATIENT
  Age: 70 Year
  Weight: 86.2 kg

DRUGS (1)
  1. HEPAGAM B [Suspect]
     Active Substance: HUMAN HEPATITIS B VIRUS IMMUNE GLOBULIN
     Indication: LIVER TRANSPLANT
     Dosage: 5000 UNIT, UNK

REACTIONS (1)
  - Drug effect decreased [Unknown]
